FAERS Safety Report 15007352 (Version 2)
Quarter: 2018Q3

REPORT INFORMATION
  Report Type: Spontaneous
  Country: JP (occurrence: JP)
  Receive Date: 20180613
  Receipt Date: 20180704
  Transmission Date: 20181010
  Serious: Yes (Other)
  Sender: FDA-Public Use
  Company Number: JP-BAXTER-2018BAX015830

PATIENT
  Age: 21 Year
  Sex: Male

DRUGS (15)
  1. UROMITEXAN 400 MG [Suspect]
     Active Substance: MESNA
     Indication: LUNG NEOPLASM MALIGNANT
     Dosage: DOSE: 2160 MG/DAY
     Route: 042
     Dates: start: 20180508, end: 20180510
  2. GRANISETRON [Suspect]
     Active Substance: GRANISETRON
     Indication: OSTEOSARCOMA
  3. HOLOXAN [Suspect]
     Active Substance: IFOSFAMIDE
     Indication: LUNG NEOPLASM MALIGNANT
     Route: 041
     Dates: start: 20180508, end: 20180510
  4. DEXART [Suspect]
     Active Substance: DEXAMETHASONE SODIUM PHOSPHATE
     Indication: LUNG NEOPLASM
     Route: 041
     Dates: start: 20180508, end: 20180510
  5. HOLOXAN [Suspect]
     Active Substance: IFOSFAMIDE
     Indication: OSTEOSARCOMA
  6. DIAMOX SEQUELS [Suspect]
     Active Substance: ACETAZOLAMIDE
     Indication: LUNG NEOPLASM
     Route: 048
     Dates: start: 20180508, end: 20180517
  7. GABALON [Suspect]
     Active Substance: BACLOFEN
     Indication: HICCUPS
     Route: 048
     Dates: start: 20180509, end: 20180511
  8. EMEND [Suspect]
     Active Substance: APREPITANT
     Indication: LUNG NEOPLASM
     Route: 048
     Dates: start: 20180508, end: 20180508
  9. DIAMOX SEQUELS [Suspect]
     Active Substance: ACETAZOLAMIDE
     Indication: OSTEOSARCOMA
  10. GRANISETRON [Suspect]
     Active Substance: GRANISETRON
     Indication: LUNG NEOPLASM
     Route: 041
     Dates: start: 20180508, end: 20180510
  11. UROMITEXAN 400 MG [Suspect]
     Active Substance: MESNA
     Indication: OSTEOSARCOMA
  12. DEXART [Suspect]
     Active Substance: DEXAMETHASONE SODIUM PHOSPHATE
     Indication: OSTEOSARCOMA
  13. EMEND [Suspect]
     Active Substance: APREPITANT
     Indication: OSTEOSARCOMA
     Route: 048
     Dates: start: 20180509, end: 20180510
  14. ADRIACIN [Concomitant]
     Active Substance: DOXORUBICIN HYDROCHLORIDE
     Indication: LUNG NEOPLASM MALIGNANT
     Route: 065
  15. ADRIACIN [Concomitant]
     Active Substance: DOXORUBICIN HYDROCHLORIDE
     Indication: OSTEOSARCOMA
     Route: 065

REACTIONS (1)
  - Toxic encephalopathy [Recovered/Resolved]

NARRATIVE: CASE EVENT DATE: 20180510
